FAERS Safety Report 8410706-5 (Version None)
Quarter: 2012Q2

REPORT INFORMATION
  Report Type: 
  Country: None (occurrence: None)
  Receive Date: 20120605
  Receipt Date: 20120524
  Transmission Date: 20120825
  Serious: Yes (Other)
  Sender: FDA-Public Use
  Company Number: JP-ELI_LILLY_AND_COMPANY-JP201205010420

PATIENT
  Sex: Female

DRUGS (5)
  1. DEPAS [Concomitant]
     Route: 048
  2. FORTEO [Suspect]
     Indication: OSTEOPOROSIS
     Dosage: 20 UG, QD
     Route: 058
     Dates: start: 20120401
  3. EPINASTINE HYDROCHLORIDE [Concomitant]
     Route: 048
  4. MAGNESIUM OXIDE [Concomitant]
     Route: 048
  5. SENNOSIDE [Concomitant]
     Route: 048

REACTIONS (1)
  - GRANULOCYTE COUNT DECREASED [None]
